FAERS Safety Report 9836551 (Version 3)
Quarter: 2014Q1

REPORT INFORMATION
  Report Type: Spontaneous
  Country: JP (occurrence: JP)
  Receive Date: 20140123
  Receipt Date: 20140211
  Transmission Date: 20141002
  Serious: Yes (Death)
  Sender: FDA-Public Use
  Company Number: JP-ROCHE-1336612

PATIENT
  Age: 8 Decade
  Sex: Male

DRUGS (2)
  1. TAMIFLU [Suspect]
     Indication: INFLUENZA
     Route: 048
     Dates: start: 20140114, end: 20140115
  2. NORSPAN PATCH [Concomitant]
     Route: 062

REACTIONS (1)
  - Death [Fatal]
